FAERS Safety Report 5899180-0 (Version None)
Quarter: 2008Q3

REPORT INFORMATION
  Report Type: 
  Country: None (occurrence: None)
  Receive Date: 20080925
  Receipt Date: 20080909
  Transmission Date: 20090109
  Serious: No
  Sender: FDA-Public Use
  Company Number: US-B.I. PHARMACEUTICALS,INC./RIDGEFIELD-2008-BP-14265BP

PATIENT
  Age: 66 Year
  Sex: Male

DRUGS (4)
  1. MIRAPEX [Suspect]
     Indication: TREMOR
     Dosage: .125MG
     Route: 048
     Dates: start: 20080905
  2. AMANTADINE [Concomitant]
     Indication: TREMOR
     Dosage: 400MG
     Route: 048
  3. GLIBERIDE [Concomitant]
     Indication: DIABETES MELLITUS
  4. MICARTIS [Concomitant]
     Indication: HYPERTENSION

REACTIONS (1)
  - SLEEP DISORDER [None]
